FAERS Safety Report 10522249 (Version 1)
Quarter: 2014Q4

REPORT INFORMATION
  Report Type: Spontaneous
  Country: US (occurrence: None)
  Receive Date: 20141010
  Receipt Date: 20141010
  Transmission Date: 20150528
  Serious: Yes (Death, Hospitalization, Other)
  Sender: FDA-Public Use
  Company Number: 2014JUB00158

PATIENT
  Age: 21 Year
  Sex: Female

DRUGS (4)
  1. PHENOBARBITAL (PHENOBARBITAL) [Concomitant]
     Active Substance: PHENOBARBITAL
  2. PHENYTOIN (PHENYTOIN) [Suspect]
     Active Substance: PHENYTOIN
     Indication: SEIZURE
  3. LAMOTRIGINE (LAMOTRIGINE) UNKNOWN [Suspect]
     Active Substance: LAMOTRIGINE
     Indication: SEIZURE
  4. LEVETIRACETAM (LEVETIRACETAM) [Concomitant]
     Active Substance: LEVETIRACETAM

REACTIONS (13)
  - Hypotension [None]
  - Thrombocytopenia [None]
  - Histiocytosis haematophagic [None]
  - Enterocolitis [None]
  - Tachycardia [None]
  - Multi-organ failure [None]
  - Drug reaction with eosinophilia and systemic symptoms [None]
  - Infection [None]
  - Hepatitis [None]
  - Duodenal ulcer [None]
  - Functional gastrointestinal disorder [None]
  - Malabsorption [None]
  - Pancreatitis [None]
